FAERS Safety Report 17698237 (Version 1)
Quarter: 2020Q2

REPORT INFORMATION
  Report Type: Spontaneous
  Country: US (occurrence: US)
  Receive Date: 20200423
  Receipt Date: 20200423
  Transmission Date: 20200714
  Serious: No
  Sender: FDA-Public Use
  Company Number: US-PFIZER INC-2020158563

PATIENT
  Age: 68 Year
  Sex: Male

DRUGS (1)
  1. INLYTA [Suspect]
     Active Substance: AXITINIB
     Indication: RENAL CANCER STAGE IV
     Dosage: 5 MG, UNK
     Dates: start: 20200301

REACTIONS (4)
  - Asthenia [Unknown]
  - Blood pressure increased [Unknown]
  - Nausea [Unknown]
  - Decreased appetite [Unknown]
